FAERS Safety Report 8926389 (Version 2)
Quarter: 2013Q1

REPORT INFORMATION
  Report Type: Spontaneous
  Country: JP (occurrence: JP)
  Receive Date: 20121127
  Receipt Date: 20130102
  Transmission Date: 20140127
  Serious: Yes (Other)
  Sender: FDA-Public Use
  Company Number: JP-GLAXOSMITHKLINE-B0846859A

PATIENT
  Sex: Male

DRUGS (4)
  1. VALTREX [Suspect]
     Indication: HERPES SIMPLEX
     Dosage: 1000MG THREE TIMES PER DAY
     Route: 048
     Dates: start: 20120807, end: 20120813
  2. UNKNOWN DRUG [Concomitant]
     Indication: HERPES SIMPLEX
     Route: 061
     Dates: start: 20120807, end: 20120813
  3. ISOBIDE [Concomitant]
     Indication: DIZZINESS
     Route: 048
  4. CEROCRAL [Concomitant]
     Indication: DIZZINESS
     Route: 048

REACTIONS (1)
  - Hypoacusis [Not Recovered/Not Resolved]
